FAERS Safety Report 5032559-8 (Version None)
Quarter: 2006Q2

REPORT INFORMATION
  Report Type: 
  Country: None (occurrence: None)
  Receive Date: 20060622
  Receipt Date: 20060614
  Transmission Date: 20061013
  Serious: Yes (Hospitalization)
  Sender: FDA-Public Use
  Company Number: FR-AVENTIS-200612161FR

PATIENT
  Age: 97 Year
  Sex: Female

DRUGS (6)
  1. LOVENOX [Suspect]
     Route: 058
     Dates: start: 20060523, end: 20060527
  2. IBUPROFENE RPG [Suspect]
     Route: 048
     Dates: start: 20060518, end: 20060527
  3. DOMPERIDONE [Concomitant]
     Route: 048
     Dates: end: 20060427
  4. EFFERALGAN [Concomitant]
     Route: 048
     Dates: end: 20060527
  5. DAFLON [Concomitant]
     Route: 048
     Dates: end: 20060527
  6. PHOSPHALUGEL [Concomitant]
     Route: 048
     Dates: end: 20060527

REACTIONS (6)
  - GASTRITIS EROSIVE [None]
  - GASTROINTESTINAL HAEMORRHAGE [None]
  - MELAENA [None]
  - OEDEMA PERIPHERAL [None]
  - PAIN IN EXTREMITY [None]
  - RECTAL HAEMORRHAGE [None]
